FAERS Safety Report 4363415-6 (Version None)
Quarter: 2004Q2

REPORT INFORMATION
  Report Type: 
  Country: None (occurrence: None)
  Receive Date: 20040517
  Receipt Date: 20040308
  Transmission Date: 20050107
  Serious: No
  Sender: FDA-Public Use
  Company Number: S04-USA-01574-01

PATIENT
  Age: 86 Year
  Sex: Female

DRUGS (7)
  1. NAMENDA [Suspect]
     Indication: DEMENTIA ALZHEIMER'S TYPE
     Dosage: 10 MG QD PO
     Route: 048
     Dates: start: 20040101
  2. ARICEPT [Concomitant]
  3. PROZAC [Concomitant]
  4. ZYPREXA [Concomitant]
  5. LASIX [Concomitant]
  6. CONGESTIVE HEART FAILURE MEDICATIONS [Concomitant]
  7. DOCUSATE SODIUM [Concomitant]

REACTIONS (1)
  - CONSTIPATION [None]
